FAERS Safety Report 5216614-5 (Version None)
Quarter: 2007Q1

REPORT INFORMATION
  Report Type: 
  Country: None (occurrence: None)
  Receive Date: 20061130
  Receipt Date: 20060518
  Transmission Date: 20070707
  Serious: Yes (Hospitalization)
  Sender: FDA-Public Use
  Company Number: US200604004374

PATIENT
  Age: 38 Year
  Sex: Female
  Weight: 81.6 kg

DRUGS (4)
  1. ZYPREXA [Suspect]
     Dosage: SEE IMAGE
     Dates: start: 20000405, end: 20020201
  2. SEROQUEL [Concomitant]
  3. LITHIUM CARBONATE [Concomitant]
  4. PAXIL [Concomitant]

REACTIONS (16)
  - ACETONAEMIA [None]
  - BLOOD CHOLESTEROL [None]
  - BLOOD TRIGLYCERIDES [None]
  - DIABETES MELLITUS [None]
  - GLUCOSE TOLERANCE IMPAIRED [None]
  - GLYCOSURIA [None]
  - HYPERGLYCAEMIA [None]
  - HYPERPHAGIA [None]
  - HYPERTENSION [None]
  - HYPOGLYCAEMIA [None]
  - KETONURIA [None]
  - LACTIC ACIDOSIS [None]
  - POLYDIPSIA [None]
  - POLYURIA [None]
  - VISION BLURRED [None]
  - WEIGHT DECREASED [None]
